FAERS Safety Report 9100432 (Version 1)
Quarter: 2013Q1

REPORT INFORMATION
  Report Type: Spontaneous
  Country: GB (occurrence: GB)
  Receive Date: 20130214
  Receipt Date: 20130214
  Transmission Date: 20140127
  Serious: Yes (Life-Threatening, Hospitalization, Other)
  Sender: FDA-Public Use
  Company Number: GB-MERCK-1302GBR005402

PATIENT
  Age: 65 Year
  Sex: Male
  Weight: 98 kg

DRUGS (5)
  1. JANUVIA [Suspect]
     Indication: DIABETES MELLITUS
     Dosage: 100 MG, UNK
     Route: 048
     Dates: start: 20120612, end: 20120713
  2. BISOPROLOL [Concomitant]
  3. CREON (PANCREATIN) [Concomitant]
  4. LISINOPRIL [Concomitant]
  5. NOVOMIX [Concomitant]

REACTIONS (2)
  - Pancreatic carcinoma [Not Recovered/Not Resolved]
  - Jaundice [Not Recovered/Not Resolved]
